FAERS Safety Report 24330963 (Version 1)
Quarter: 2024Q3

REPORT INFORMATION
  Report Type: Spontaneous
  Country: ES (occurrence: ES)
  Receive Date: 20240918
  Receipt Date: 20240918
  Transmission Date: 20241016
  Serious: Yes (Hospitalization, Other)
  Sender: STRIDES
  Company Number: ES-STRIDES ARCOLAB LIMITED-2024SP011699

PATIENT
  Age: 61 Year
  Sex: Male

DRUGS (6)
  1. ETOPOSIDE [Suspect]
     Active Substance: ETOPOSIDE
     Indication: Small cell lung cancer extensive stage
     Dosage: 100 MG/M2, CYCLICAL (ON DAYS 1-3) (INDUCTION THERAPY)
     Route: 042
     Dates: start: 20161102
  2. CARBOPLATIN [Suspect]
     Active Substance: CARBOPLATIN
     Indication: Small cell lung cancer extensive stage
     Dosage: (AREA UNDER THE CURVE 5 MG/ML/MIN ON DAY 1), CYCLICAL (FOUR 21-DAY CYCLES) (INDUCTION THERAPY)
     Route: 042
     Dates: start: 20161102
  3. ATEZOLIZUMAB [Suspect]
     Active Substance: ATEZOLIZUMAB
     Indication: Small cell lung cancer extensive stage
     Dosage: 1200 MILLIGRAM, CYCLICAL (ON DAY 1 OF EACH CYCLE)
     Route: 042
     Dates: start: 20161102
  4. ATEZOLIZUMAB [Suspect]
     Active Substance: ATEZOLIZUMAB
     Dosage: 1200 MILLIGRAM, EVERY 3 WEEKS (SIX CYCLES OF MAINTENANCE)
     Route: 065
  5. ATEZOLIZUMAB [Suspect]
     Active Substance: ATEZOLIZUMAB
     Dosage: UNK, CYCLICAL (CYCLE 11 WAS RESUMED)
     Route: 065
     Dates: start: 201707
  6. LEVOTHYROXINE [Concomitant]
     Active Substance: LEVOTHYROXINE\LEVOTHYROXINE SODIUM
     Indication: Hypothyroidism
     Dosage: UNK
     Route: 065

REACTIONS (2)
  - Nephropathy [Unknown]
  - Therapy partial responder [Unknown]
